FAERS Safety Report 6645429-6 (Version None)
Quarter: 2010Q1

REPORT INFORMATION
  Report Type: 
  Country: None (occurrence: None)
  Receive Date: 20100322
  Receipt Date: 20100311
  Transmission Date: 20100710
  Serious: Yes (Other)
  Sender: FDA-Public Use
  Company Number: US-ASTRAZENECA-2010SE10613

PATIENT
  Age: 56 Year
  Sex: Female
  Weight: 63.5 kg

DRUGS (5)
  1. NEXIUM [Suspect]
     Indication: GASTROOESOPHAGEAL REFLUX DISEASE
     Route: 048
     Dates: start: 20090301
  2. OMEPRAZOLE [Concomitant]
  3. ZOCOR [Concomitant]
     Indication: BLOOD CHOLESTEROL
  4. TRAMADOL [Concomitant]
     Indication: PAIN
  5. NEURONTIN [Concomitant]
     Indication: INTRACRANIAL ANEURYSM

REACTIONS (4)
  - DRUG INEFFECTIVE [None]
  - HEART VALVE INCOMPETENCE [None]
  - INTRACRANIAL ANEURYSM [None]
  - OESOPHAGITIS [None]
